FAERS Safety Report 9905571 (Version 2)
Quarter: 2014Q2

REPORT INFORMATION
  Report Type: Spontaneous
  Country: GB (occurrence: GB)
  Receive Date: 20140218
  Receipt Date: 20140613
  Transmission Date: 20141212
  Serious: Yes (Other)
  Sender: FDA-Public Use
  Company Number: GB-GLAXOSMITHKLINE-B0968778A

PATIENT
  Age: 71 Year
  Sex: Male
  Weight: 115 kg

DRUGS (6)
  1. SERETIDE [Suspect]
     Indication: CHRONIC OBSTRUCTIVE PULMONARY DISEASE
     Dosage: 1PUFF TWICE PER DAY
     Route: 065
     Dates: start: 20110809
  2. TIOTROPIUM [Concomitant]
     Dosage: 1PUFF SINGLE DOSE
     Route: 055
     Dates: start: 20100623
  3. SALBUTAMOL EASI BREATHE [Concomitant]
     Dosage: 2PUFF FOUR TIMES PER DAY
     Route: 055
     Dates: start: 20050803
  4. MONTELUKAST [Concomitant]
     Dosage: 10MG PER DAY
     Route: 048
     Dates: start: 20120214
  5. LISINOPRIL [Concomitant]
     Dosage: 5MG PER DAY
     Route: 048
     Dates: start: 20040413
  6. SIMVASTATIN [Concomitant]
     Dosage: 20MG PER DAY
     Route: 048
     Dates: start: 20120815

REACTIONS (1)
  - Haemophilus test positive [Recovering/Resolving]
